FAERS Safety Report 8828754 (Version 2)
Quarter: 2012Q4

REPORT INFORMATION
  Report Type: 
  Country: US (occurrence: US)
  Receive Date: 20121008
  Receipt Date: 20121106
  Transmission Date: 20130627
  Serious: Yes (Other)
  Sender: FDA-Public Use
  Company Number: US-ROCHE-1141503

PATIENT
  Age: 66 Year
  Sex: Male
  Weight: 82.17 kg

DRUGS (10)
  1. XOLAIR [Suspect]
     Indication: ASTHMA
     Route: 058
     Dates: start: 20111206, end: 20121002
  2. ASTELIN [Concomitant]
     Indication: RHINITIS ALLERGIC
     Route: 011
     Dates: start: 2005
  3. ALLEGRA [Concomitant]
     Indication: RHINITIS ALLERGIC
     Route: 048
     Dates: start: 2003
  4. QVAR [Concomitant]
     Indication: ASTHMA
     Route: 055
     Dates: start: 20110616
  5. DULERA [Concomitant]
     Indication: ASTHMA
     Route: 055
     Dates: start: 20110616
  6. SINGULAIR [Concomitant]
     Indication: RHINITIS ALLERGIC
     Route: 048
     Dates: start: 2001
  7. SINGULAIR [Concomitant]
     Indication: ASTHMA
  8. GLUCOSAMINE [Concomitant]
     Indication: ARTHRALGIA
     Route: 048
     Dates: start: 2010
  9. DOXYCYCLINE [Concomitant]
     Indication: ROSACEA
     Route: 048
     Dates: start: 20110301
  10. NASONEX [Concomitant]
     Indication: RHINITIS ALLERGIC
     Route: 065
     Dates: start: 2001

REACTIONS (1)
  - Deep vein thrombosis [Not Recovered/Not Resolved]
